FAERS Safety Report 6523495-6 (Version None)
Quarter: 2009Q4

REPORT INFORMATION
  Report Type: 
  Country: None (occurrence: None)
  Receive Date: 20091231
  Receipt Date: 20091221
  Transmission Date: 20100525
  Serious: Yes (Other)
  Sender: FDA-Public Use
  Company Number: PHHY2009ZA24706

PATIENT
  Sex: Female

DRUGS (3)
  1. DIOVAN [Suspect]
     Dosage: 2 TABLETS (80 MG) DAY
     Route: 048
  2. ELTROXIN [Concomitant]
     Indication: HYPOTHYROIDISM
  3. HORMONES [Concomitant]

REACTIONS (2)
  - BLOOD PRESSURE INCREASED [None]
  - PARADOXICAL DRUG REACTION [None]
